FAERS Safety Report 13948627 (Version 1)
Quarter: 2017Q3

REPORT INFORMATION
  Report Type: Spontaneous
  Country: CA (occurrence: CA)
  Receive Date: 20170908
  Receipt Date: 20170908
  Transmission Date: 20171128
  Serious: Yes (Other)
  Sender: FDA-Public Use
  Company Number: CA-TEVA-804700ACC

PATIENT
  Age: 57 Year
  Sex: Female

DRUGS (10)
  1. ATENOLOL TABLETS, BP [Concomitant]
     Active Substance: ATENOLOL
  2. METFORMIN [Concomitant]
     Active Substance: METFORMIN HYDROCHLORIDE
  3. DOCUSATE SODIUM. [Concomitant]
     Active Substance: DOCUSATE SODIUM
  4. FENOFIBRATE. [Concomitant]
     Active Substance: FENOFIBRATE
  5. TOLTERODINE [Concomitant]
     Active Substance: TOLTERODINE
  6. GD-AMLODIPINE/ATORVASTATIN [Concomitant]
  7. LANSOPRAZOLE. [Concomitant]
     Active Substance: LANSOPRAZOLE
  8. DOMPERIDONE [Concomitant]
     Active Substance: DOMPERIDONE
  9. FUROSEMIDE. [Concomitant]
     Active Substance: FUROSEMIDE
  10. ACT RAMIPRIL [Suspect]
     Active Substance: RAMIPRIL

REACTIONS (1)
  - Gastrointestinal haemorrhage [Not Recovered/Not Resolved]
